FAERS Safety Report 9492517 (Version 1)
Quarter: 2013Q3

REPORT INFORMATION
  Report Type: Report from Study
  Country: US (occurrence: US)
  Receive Date: 20130830
  Receipt Date: 20130830
  Transmission Date: 20140515
  Serious: Yes (Hospitalization)
  Sender: FDA-Public Use
  Company Number: US-US-EMD SERONO, INC.-7233935

PATIENT
  Age: 75 Year
  Sex: Female
  Weight: 91 kg

DRUGS (1)
  1. REBIF [Suspect]
     Indication: MULTIPLE SCLEROSIS
     Route: 058
     Dates: start: 20130418, end: 201307

REACTIONS (6)
  - Pulmonary thrombosis [Recovering/Resolving]
  - Thrombosis [Recovering/Resolving]
  - Nausea [Unknown]
  - Feeling abnormal [Unknown]
  - Asthenia [Recovering/Resolving]
  - Multiple sclerosis [Unknown]
